FAERS Safety Report 9012998 (Version 2)
Quarter: 2013Q1

REPORT INFORMATION
  Report Type: Report from Study
  Country: JP (occurrence: JP)
  Receive Date: 20130114
  Receipt Date: 20130301
  Transmission Date: 20140127
  Serious: Yes (Death)
  Sender: FDA-Public Use
  Company Number: JP-009507513-1301JPN005102

PATIENT
  Age: 80 Year
  Sex: Female
  Weight: 60 kg

DRUGS (4)
  1. JANUVIA TABLETS 50MG [Suspect]
     Indication: TYPE 2 DIABETES MELLITUS
     Dosage: 50 MG, QD
     Route: 048
     Dates: start: 20111220, end: 20120629
  2. LIPITOR [Concomitant]
     Indication: DYSLIPIDAEMIA
     Dosage: 10 MG, QD
     Route: 048
     Dates: start: 20081128, end: 20120629
  3. CALSLOT [Concomitant]
     Indication: HYPERTENSION
     Dosage: 20 MG, QD
     Route: 048
     Dates: start: 20081128, end: 20120629
  4. INNOLET R [Concomitant]
     Indication: TYPE 2 DIABETES MELLITUS
     Dosage: 12 DF, BID
     Route: 042
     Dates: start: 20081128, end: 20120629

REACTIONS (1)
  - Road traffic accident [Fatal]
